FAERS Safety Report 7927165-9 (Version None)
Quarter: 2011Q4

REPORT INFORMATION
  Report Type: 
  Country: None (occurrence: None)
  Receive Date: 20111118
  Receipt Date: 20111110
  Transmission Date: 20120403
  Serious: Yes (Other)
  Sender: FDA-Public Use
  Company Number: DE-UCBSA-045573

PATIENT
  Age: 76 Year
  Sex: Male
  Weight: 60 kg

DRUGS (4)
  1. KEPPRA [Suspect]
  2. KEPPRA [Interacting]
     Route: 048
     Dates: start: 20110922
  3. CANDESARTAN CILEXETIL [Interacting]
     Dosage: 8 MG
  4. KRYON [Concomitant]
     Dosage: UNKNOWN DOASAGE

REACTIONS (7)
  - RENAL IMPAIRMENT [None]
  - DRUG INTERACTION [None]
  - PANCREATITIS CHRONIC [None]
  - BLOOD SODIUM DECREASED [None]
  - EYE DISORDER [None]
  - NAIL DISCOLOURATION [None]
  - PARAESTHESIA [None]
